FAERS Safety Report 24382089 (Version 1)
Quarter: 2024Q4

REPORT INFORMATION
  Report Type: Spontaneous
  Country: FR (occurrence: FR)
  Receive Date: 20241001
  Receipt Date: 20241001
  Transmission Date: 20250115
  Serious: Yes (Death)
  Sender: EMD SERONO INC
  Company Number: None

PATIENT
  Age: 65 Year
  Sex: Male
  Weight: 81 kg

DRUGS (8)
  1. METFORMIN [Suspect]
     Active Substance: METFORMIN HYDROCHLORIDE
     Indication: Insulin-requiring type 2 diabetes mellitus
     Dosage: 1000 MG 1-1-1 LONG TERM
     Route: 048
  2. RAMIPRIL [Concomitant]
     Active Substance: RAMIPRIL
     Indication: Product used for unknown indication
     Dosage: RAMIPRIL 2.5 MG: 1-0-1 MORNING AND EVENING
     Route: 048
  3. PANTOPRAZOLE [Concomitant]
     Active Substance: PANTOPRAZOLE
     Indication: Product used for unknown indication
     Dosage: PANTOPRAZOLE 20 MG: 0-0-1 (EVENING)
     Route: 048
  4. DULAGLUTIDE [Concomitant]
     Active Substance: DULAGLUTIDE
     Indication: Product used for unknown indication
     Dosage: DULAGLUTIDE 1.5 MG/WEEK
     Route: 058
  5. GLIMEPIRIDE [Concomitant]
     Active Substance: GLIMEPIRIDE
     Indication: Product used for unknown indication
     Dosage: AMAREL (GLIMEPIRIDE) 4 MG: 1-0-0 (MORNING)
     Route: 048
  6. INSULIN NOS [Concomitant]
     Active Substance: INSULIN NOS
     Indication: Product used for unknown indication
     Dosage: EVENING?SLOW INSULIN 58 IU: 0-0-1
     Route: 058
  7. KARDEGIC [Concomitant]
     Active Substance: ASPIRIN DL-LYSINE
     Indication: Product used for unknown indication
     Dosage: MORNING?KARDEGIC (ACETYLSALICYLIC ACID) 75 MG: 1-0-0
     Route: 048
  8. BISOPROLOL FUMARATE [Concomitant]
     Active Substance: BISOPROLOL FUMARATE
     Indication: Product used for unknown indication
     Dosage: BISOPROLOL 5 MG: 1-0-0 (MORNING)
     Route: 048

REACTIONS (2)
  - Lactic acidosis [Fatal]
  - Overdose [Fatal]

NARRATIVE: CASE EVENT DATE: 20240826
